FAERS Safety Report 6243180-8 (Version None)
Quarter: 2009Q2

REPORT INFORMATION
  Report Type: 
  Country: None (occurrence: None)
  Receive Date: 20090624
  Receipt Date: 20090424
  Transmission Date: 20091009
  Serious: Yes (Hospitalization)
  Sender: FDA-Public Use
  Company Number: TR-ELI_LILLY_AND_COMPANY-TR200906003338

PATIENT
  Age: 57 Year
  Sex: Male

DRUGS (3)
  1. HUMALOG [Suspect]
     Indication: DIABETES MELLITUS
     Dosage: 15 D/F, EACH MORNING
     Route: 058
     Dates: start: 20080101
  2. HUMALOG [Suspect]
     Dosage: 15 D/F, LUNCH TIME
     Route: 058
     Dates: start: 20080101
  3. LANTUS [Concomitant]
     Indication: DIABETES MELLITUS
     Dosage: 20 U, DAILY (1/D)
     Route: 058
     Dates: start: 20080101

REACTIONS (2)
  - HYPERGLYCAEMIA [None]
  - VASCULAR GRAFT [None]
